FAERS Safety Report 5059353-6 (Version None)
Quarter: 2006Q3

REPORT INFORMATION
  Report Type: 
  Country: None (occurrence: None)
  Receive Date: 20060718
  Receipt Date: 20060704
  Transmission Date: 20061208
  Serious: Yes (Hospitalization, Other)
  Sender: FDA-Public Use
  Company Number: 2006078217

PATIENT
  Age: 54 Year
  Sex: Female

DRUGS (3)
  1. CARDYL (ATORVASTATIN) [Suspect]
     Indication: HYPERCHOLESTEROLAEMIA
     Dosage: 40 MG (40 MG DAILY) ORAL
     Route: 048
     Dates: start: 20040101
  2. LORAZEPAM [Concomitant]
  3. ZOLPIDEM TARTRATE [Concomitant]

REACTIONS (3)
  - COLD SWEAT [None]
  - DIZZINESS [None]
  - OVARIAN CANCER [None]
